FAERS Safety Report 5065803-1 (Version None)
Quarter: 2006Q3

REPORT INFORMATION
  Report Type: 
  Country: None (occurrence: None)
  Receive Date: 20060731
  Receipt Date: 20060719
  Transmission Date: 20061208
  Serious: Yes (Hospitalization)
  Sender: FDA-Public Use
  Company Number: DE-GLAXOSMITHKLINE-B0431226A

PATIENT
  Age: 41 Year
  Sex: Female

DRUGS (2)
  1. FORMIGRAN [Suspect]
     Indication: MIGRAINE
     Dosage: 2.5MG PER DAY
     Route: 048
     Dates: start: 20060613, end: 20060613
  2. ADVAIR DISKUS 100/50 [Concomitant]

REACTIONS (8)
  - ASTHENIA [None]
  - DYSPNOEA [None]
  - HEADACHE [None]
  - MUSCULOSKELETAL STIFFNESS [None]
  - PALLOR [None]
  - PANIC ATTACK [None]
  - TETANY [None]
  - TREMOR [None]
